FAERS Safety Report 15740226 (Version 1)
Quarter: 2018Q4

REPORT INFORMATION
  Report Type: Spontaneous
  Country: US (occurrence: US)
  Receive Date: 20181219
  Receipt Date: 20181219
  Transmission Date: 20190205
  Serious: Yes (Hospitalization, Other)
  Sender: FDA-Public Use
  Company Number: US-AMGEN-USASP2018177257

PATIENT
  Sex: Female

DRUGS (1)
  1. PROLIA [Suspect]
     Active Substance: DENOSUMAB
     Indication: PRODUCT USED FOR UNKNOWN INDICATION
     Dosage: UNK UNK, Q6MO
     Route: 065

REACTIONS (9)
  - Exfoliative rash [Unknown]
  - Abdominal abscess [Unknown]
  - Tooth infection [Unknown]
  - Swelling face [Unknown]
  - Facial paralysis [Unknown]
  - Skin infection [Recovered/Resolved]
  - Scab [Unknown]
  - Bone density decreased [Unknown]
  - Back pain [Unknown]
